FAERS Safety Report 24423139 (Version 1)
Quarter: 2024Q4

REPORT INFORMATION
  Report Type: Spontaneous
  Country: AU (occurrence: AU)
  Receive Date: 20241010
  Receipt Date: 20241010
  Transmission Date: 20250114
  Serious: Yes (Hospitalization, Other)
  Sender: OTSUKA
  Company Number: AU-LUNDBECK-DKLU4004778

PATIENT

DRUGS (8)
  1. ABILIFY MAINTENA [Suspect]
     Active Substance: ARIPIPRAZOLE
     Indication: Product used for unknown indication
     Dosage: UNK
     Route: 065
     Dates: start: 20240717
  2. BUPRENORPHINE HYDROCHLORIDE [Suspect]
     Active Substance: BUPRENORPHINE HYDROCHLORIDE
     Indication: Product used for unknown indication
     Dosage: UNK UNK, QM
     Route: 058
     Dates: start: 20240722
  3. CLOZARIL [Suspect]
     Active Substance: CLOZAPINE
     Indication: Schizophrenia
     Dosage: UNK
     Route: 048
     Dates: start: 20240712, end: 20240801
  4. CLOZARIL [Suspect]
     Active Substance: CLOZAPINE
     Indication: Product used for unknown indication
     Dosage: 12.5 MILLIGRAM
     Route: 048
     Dates: start: 20240717
  5. CLOZARIL [Suspect]
     Active Substance: CLOZAPINE
     Dosage: 200 MILLIGRAM
     Route: 048
     Dates: start: 20240801
  6. ABILIFY [Concomitant]
     Active Substance: ARIPIPRAZOLE
     Indication: Product used for unknown indication
     Dosage: UNK
     Route: 065
  7. HALOPERIDOL [Concomitant]
     Active Substance: HALOPERIDOL
     Indication: Product used for unknown indication
     Dosage: 4 MILLIGRAM
     Route: 065
  8. OLANZAPINE [Concomitant]
     Active Substance: OLANZAPINE
     Indication: Product used for unknown indication
     Dosage: UNK
     Route: 065

REACTIONS (19)
  - Myocarditis [Unknown]
  - Mental impairment [Unknown]
  - Anion gap decreased [Recovered/Resolved]
  - Antipsychotic drug level increased [Unknown]
  - Blood osmolarity increased [Recovering/Resolving]
  - Blood phosphorus decreased [Recovered/Resolved]
  - Bone disorder [Unknown]
  - C-reactive protein increased [Recovering/Resolving]
  - Mean cell haemoglobin decreased [Recovered/Resolved]
  - Troponin C increased [Recovered/Resolved]
  - Troponin increased [Unknown]
  - Blood albumin decreased [Recovered/Resolved]
  - Protein urine present [Unknown]
  - Blood sodium increased [Recovered/Resolved]
  - Sinus tachycardia [Unknown]
  - Delusion [Unknown]
  - Chest discomfort [Unknown]
  - Cough [Unknown]
  - Fatigue [Unknown]

NARRATIVE: CASE EVENT DATE: 20240716
